FAERS Safety Report 4691872-4 (Version None)
Quarter: 2005Q2

REPORT INFORMATION
  Report Type: 
  Country: None (occurrence: None)
  Receive Date: 20050615
  Receipt Date: 20050615
  Transmission Date: 20051028
  Serious: No
  Sender: FDA-Public Use
  Company Number: None

PATIENT
  Age: 73 Year
  Sex: Female
  Weight: 23 kg

DRUGS (9)
  1. KETEK [Suspect]
     Indication: SINUSITIS
     Dosage: 2 EACH DAY
     Dates: start: 20051216, end: 20051219
  2. ADVAIR [Concomitant]
  3. PREDNISONE TAB [Concomitant]
  4. LEVAQUIN [Concomitant]
  5. ALLEGRA [Concomitant]
  6. NASACORT [Concomitant]
  7. ACTONEL [Concomitant]
  8. OGEN [Concomitant]
  9. LIQUIBID-D [Concomitant]

REACTIONS (2)
  - DIPLOPIA [None]
  - TACHYCARDIA [None]
